FAERS Safety Report 8206149-X (Version None)
Quarter: 2012Q1

REPORT INFORMATION
  Report Type: 
  Country: None (occurrence: None)
  Receive Date: 20120313
  Receipt Date: 20120301
  Transmission Date: 20120608
  Serious: Yes (Hospitalization)
  Sender: FDA-Public Use
  Company Number: DE-ELI_LILLY_AND_COMPANY-DE201203000095

PATIENT
  Sex: Female

DRUGS (2)
  1. METFORMIN HCL [Concomitant]
     Dosage: 1000 MG, BID
     Dates: start: 20111101
  2. BYDUREON [Suspect]
     Indication: TYPE 2 DIABETES MELLITUS
     Dosage: 2 MG, WEEKLY (1/W)
     Route: 058
     Dates: start: 20111101

REACTIONS (5)
  - DIZZINESS [None]
  - NAUSEA [None]
  - FALL [None]
  - GENERAL PHYSICAL CONDITION ABNORMAL [None]
  - ABDOMINAL DISCOMFORT [None]
